FAERS Safety Report 25998555 (Version 1)
Quarter: 2025Q4

REPORT INFORMATION
  Report Type: Spontaneous
  Country: TW (occurrence: TW)
  Receive Date: 20251105
  Receipt Date: 20251105
  Transmission Date: 20260117
  Serious: Yes (Other)
  Sender: ROCHE
  Company Number: TW-002147023-NVSC2025TW167039

PATIENT
  Age: 23 Year
  Sex: Female

DRUGS (17)
  1. OMALIZUMAB [Suspect]
     Active Substance: OMALIZUMAB
     Indication: Product used for unknown indication
     Dosage: 150 MG (Q4W)
     Route: 065
     Dates: start: 20200529
  2. OMALIZUMAB [Suspect]
     Active Substance: OMALIZUMAB
     Dosage: 150 MG (Q4W)
     Route: 065
     Dates: start: 20210312
  3. OMALIZUMAB [Suspect]
     Active Substance: OMALIZUMAB
     Dosage: 150 MG (Q4W)
     Route: 065
     Dates: start: 20210618
  4. OMALIZUMAB [Suspect]
     Active Substance: OMALIZUMAB
     Dosage: 150 MG (Q4W)
     Route: 065
     Dates: start: 20210924
  5. OMALIZUMAB [Suspect]
     Active Substance: OMALIZUMAB
     Dosage: 300 MG
     Route: 065
     Dates: start: 20221113
  6. OMALIZUMAB [Suspect]
     Active Substance: OMALIZUMAB
     Dosage: 300 MG (Q4W)
     Route: 065
     Dates: start: 20230203
  7. OMALIZUMAB [Suspect]
     Active Substance: OMALIZUMAB
     Dosage: 300 MG (Q4W)
     Route: 065
     Dates: start: 20230708
  8. OMALIZUMAB [Suspect]
     Active Substance: OMALIZUMAB
     Dosage: 300 MG (Q4W)
     Route: 065
     Dates: start: 20240112
  9. METHYLPREDNISOLONE [Concomitant]
     Active Substance: METHYLPREDNISOLONE
     Indication: Product used for unknown indication
     Dosage: 8 MG
     Route: 065
     Dates: start: 20200324, end: 20200519
  10. METHYLPREDNISOLONE [Concomitant]
     Active Substance: METHYLPREDNISOLONE
     Dosage: 8 MG
     Route: 065
     Dates: start: 20200521, end: 20200525
  11. LEVOCETIRIZINE [Concomitant]
     Active Substance: LEVOCETIRIZINE
     Indication: Product used for unknown indication
     Dosage: 5 UNK, BID
     Route: 065
     Dates: start: 20190830, end: 20221121
  12. FEXOFENADINE [Concomitant]
     Active Substance: FEXOFENADINE HYDROCHLORIDE
     Indication: Product used for unknown indication
     Dosage: UNK
     Route: 065
     Dates: start: 20200324, end: 20240207
  13. DEXAMETHASONE PHOSPHATE [Concomitant]
     Active Substance: DEXAMETHASONE PHOSPHATE
     Indication: Product used for unknown indication
     Dosage: 5 MG
     Route: 065
     Dates: start: 20200421
  14. DEXAMETHASONE PHOSPHATE [Concomitant]
     Active Substance: DEXAMETHASONE PHOSPHATE
     Dosage: 5 MG
     Route: 065
     Dates: start: 20200512
  15. DEXAMETHASONE PHOSPHATE [Concomitant]
     Active Substance: DEXAMETHASONE PHOSPHATE
     Dosage: 5 MG
     Route: 065
     Dates: start: 20200521
  16. AZATHIOPRINE [Concomitant]
     Active Substance: AZATHIOPRINE
     Indication: Product used for unknown indication
     Dosage: 50 MG
     Route: 065
     Dates: start: 20200505, end: 20200512
  17. CYCLOSPORINE [Concomitant]
     Active Substance: CYCLOSPORINE
     Indication: Product used for unknown indication
     Dosage: 100 MG
     Route: 065
     Dates: start: 20200512, end: 20201005

REACTIONS (5)
  - Angioedema [Unknown]
  - Condition aggravated [Unknown]
  - Urticaria [Unknown]
  - Eosinophil count abnormal [Unknown]
  - Blood immunoglobulin E abnormal [Unknown]

NARRATIVE: CASE EVENT DATE: 20210309
